FAERS Safety Report 7020803-7 (Version None)
Quarter: 2010Q3

REPORT INFORMATION
  Report Type: 
  Country: None (occurrence: None)
  Receive Date: 20100924
  Receipt Date: 20100910
  Transmission Date: 20110219
  Serious: Yes (Other)
  Sender: FDA-Public Use
  Company Number: 011109

PATIENT

DRUGS (5)
  1. BUSULFEX [Suspect]
     Indication: BONE MARROW CONDITIONING REGIMEN
     Dosage: INTRAVENOUS
     Route: 042
  2. CYCLOPHOSPHAMIDE [Concomitant]
  3. CYCLOSPORINE [Concomitant]
  4. METHOTREXATE [Concomitant]
  5. IMMUNOGLOBULINS (IMMONOGLOBULINS) [Concomitant]

REACTIONS (5)
  - ACUTE GRAFT VERSUS HOST DISEASE [None]
  - BACTERIAL INFECTION [None]
  - CHRONIC GRAFT VERSUS HOST DISEASE [None]
  - CYTOMEGALOVIRUS INFECTION [None]
  - FUNGAL INFECTION [None]
